FAERS Safety Report 5099588-X (Version None)
Quarter: 2006Q3

REPORT INFORMATION
  Report Type: 
  Country: None (occurrence: None)
  Receive Date: 20060908
  Receipt Date: 20060831
  Transmission Date: 20061208
  Serious: Yes (Hospitalization)
  Sender: FDA-Public Use
  Company Number: SE-JNJFOC-20060900452

PATIENT
  Age: 71 Year
  Sex: Female

DRUGS (9)
  1. REMICADE [Suspect]
     Indication: RHEUMATOID ARTHRITIS
     Route: 042
  2. METHOTREXATE [Concomitant]
     Route: 065
  3. FOLACIN [Concomitant]
     Route: 065
  4. ALVEDON FORTE [Concomitant]
     Route: 065
  5. FOSAMAX [Concomitant]
     Route: 065
  6. CALCICHEW D3 [Concomitant]
     Route: 065
  7. EFFEXOR [Concomitant]
     Route: 065
  8. FLUANXOL [Concomitant]
     Route: 065
  9. AERIUS [Concomitant]
     Route: 065

REACTIONS (4)
  - ERYSIPELAS [None]
  - OSTEOARTHRITIS [None]
  - RHEUMATOID ARTHRITIS [None]
  - SYNOVIAL RUPTURE [None]
